FAERS Safety Report 5016382-6 (Version None)
Quarter: 2006Q2

REPORT INFORMATION
  Report Type: 
  Country: None (occurrence: None)
  Receive Date: 20060526
  Receipt Date: 20060516
  Transmission Date: 20061013
  Serious: Yes (Hospitalization)
  Sender: FDA-Public Use
  Company Number: DE200604001853

PATIENT
  Age: 48 Year
  Sex: Male

DRUGS (3)
  1. DULOXETINE HYDROCHLORIDE(DULOXETINE HYDROCHLORIDE) CAPSULE [Suspect]
     Indication: DEPRESSION
     Dosage: 30 + 60MG, DAILY (1/D), ORAL
     Route: 048
     Dates: start: 20060123, end: 20060207
  2. DULOXETINE HYDROCHLORIDE(DULOXETINE HYDROCHLORIDE) CAPSULE [Suspect]
     Indication: DEPRESSION
     Dosage: 30 + 60MG, DAILY (1/D), ORAL
     Route: 048
     Dates: start: 20060208
  3. TRIMIPRAMINE MALEATE [Concomitant]

REACTIONS (4)
  - CARDIOVASCULAR DISORDER [None]
  - HAEMATOMA [None]
  - IMPAIRED HEALING [None]
  - TENDON TRANSFER [None]
